FAERS Safety Report 8337472-6 (Version None)
Quarter: 2012Q2

REPORT INFORMATION
  Report Type: 
  Country: None (occurrence: None)
  Receive Date: 20120504
  Receipt Date: 20120501
  Transmission Date: 20120825
  Serious: Yes (Other)
  Sender: FDA-Public Use
  Company Number: US-PFIZER INC-2012096179

PATIENT
  Sex: Male

DRUGS (1)
  1. ZOLOFT [Suspect]
     Dosage: 50 MG, ONCE A DAY IN THE MORNING

REACTIONS (5)
  - MENTAL IMPAIRMENT [None]
  - JUDGEMENT IMPAIRED [None]
  - MEMORY IMPAIRMENT [None]
  - ABNORMAL BEHAVIOUR [None]
  - IMPAIRED WORK ABILITY [None]
